FAERS Safety Report 5706139-2 (Version None)
Quarter: 2008Q2

REPORT INFORMATION
  Report Type: 
  Country: None (occurrence: None)
  Receive Date: 20080415
  Receipt Date: 20080403
  Transmission Date: 20081010
  Serious: Yes (Other)
  Sender: FDA-Public Use
  Company Number: US-PFIZER INC-2008029919

PATIENT
  Sex: Female
  Weight: 67.1 kg

DRUGS (11)
  1. LYRICA [Suspect]
     Indication: FIBROMYALGIA
     Dates: start: 20080320, end: 20080328
  2. EFFEXOR XR [Suspect]
  3. TRAMADOL HCL [Concomitant]
  4. AVANDIA [Concomitant]
  5. ALL OTHER THERAPEUTIC PRODUCTS [Concomitant]
  6. LORAZEPAM [Concomitant]
  7. ATENOLOL [Concomitant]
  8. ZANTAC [Concomitant]
  9. BACTRIM [Concomitant]
  10. PILOCARPINE [Concomitant]
  11. CRESTOR [Concomitant]

REACTIONS (4)
  - BALANCE DISORDER [None]
  - CONTUSION [None]
  - FALL [None]
  - SWELLING FACE [None]
